FAERS Safety Report 10207352 (Version 1)
Quarter: 2014Q2

REPORT INFORMATION
  Report Type: Spontaneous
  Country: US (occurrence: US)
  Receive Date: 20140530
  Receipt Date: 20140530
  Transmission Date: 20141212
  Serious: No
  Sender: FDA-Public Use
  Company Number: US-GLAXOSMITHKLINE-A1036491A

PATIENT
  Age: 62 Year
  Sex: Male
  Weight: 49.1 kg

DRUGS (8)
  1. ALBUTEROL [Suspect]
     Indication: CHRONIC OBSTRUCTIVE PULMONARY DISEASE
     Route: 065
  2. THEOPHYLLINE [Suspect]
     Indication: CHRONIC OBSTRUCTIVE PULMONARY DISEASE
     Route: 065
  3. CHANTIX [Suspect]
     Indication: EX-TOBACCO USER
     Dosage: .5MG PER DAY
     Route: 065
     Dates: start: 20130612, end: 20130613
  4. DALIRESP [Suspect]
     Indication: CHRONIC OBSTRUCTIVE PULMONARY DISEASE
     Route: 065
  5. SYMBICORT [Suspect]
     Indication: CHRONIC OBSTRUCTIVE PULMONARY DISEASE
     Route: 065
  6. SPIRIVA [Suspect]
     Indication: CHRONIC OBSTRUCTIVE PULMONARY DISEASE
     Route: 065
  7. ANTIBIOTICS [Concomitant]
  8. STEROIDS [Concomitant]

REACTIONS (2)
  - Nervousness [Unknown]
  - Drug interaction [Unknown]
